FAERS Safety Report 17745341 (Version 2)
Quarter: 2020Q2

REPORT INFORMATION
  Report Type: Report from Study
  Country: DE (occurrence: DE)
  Receive Date: 20200505
  Receipt Date: 20200512
  Transmission Date: 20200714
  Serious: Yes (Death, Hospitalization)
  Sender: FDA-Public Use
  Company Number: PHHY2018DE179722

PATIENT
  Sex: Female
  Weight: 66.7 kg

DRUGS (4)
  1. PALBOCICLIB [Concomitant]
     Active Substance: PALBOCICLIB
     Indication: HER2 POSITIVE BREAST CANCER
     Dosage: 125 MG, QD
     Route: 048
     Dates: start: 20181203, end: 20191105
  2. LETROZOLE. [Suspect]
     Active Substance: LETROZOLE
     Indication: BREAST CANCER METASTATIC
     Dosage: 2.5 MG, QD
     Route: 048
     Dates: start: 20181105, end: 20181110
  3. LETROZOLE. [Suspect]
     Active Substance: LETROZOLE
     Dosage: 2.5 MG, QD
     Route: 048
     Dates: start: 20181203, end: 20191105
  4. KISQALI [Suspect]
     Active Substance: RIBOCICLIB
     Indication: BREAST CANCER METASTATIC
     Dosage: 600 MG, (21 DAYS)
     Route: 048
     Dates: start: 20181105, end: 20181110

REACTIONS (3)
  - Musculoskeletal pain [Recovered/Resolved]
  - Breast cancer metastatic [Fatal]
  - Malignant neoplasm progression [Fatal]

NARRATIVE: CASE EVENT DATE: 20181119
